FAERS Safety Report 18241971 (Version 3)
Quarter: 2022Q1

REPORT INFORMATION
  Report Type: Report from Study
  Country: CN (occurrence: CN)
  Receive Date: 20200908
  Receipt Date: 20220329
  Transmission Date: 20220424
  Serious: Yes (Death)
  Sender: FDA-Public Use
  Company Number: CN-PFIZER INC-2020344185

PATIENT
  Age: 6 Year
  Sex: Male
  Weight: 21 kg

DRUGS (15)
  1. METHYLPREDNISOLONE [Suspect]
     Active Substance: METHYLPREDNISOLONE
     Indication: Graft versus host disease
     Dosage: UNK
     Dates: start: 2019
  2. PIPERACILLIN SODIUM\TAZOBACTAM SODIUM [Suspect]
     Active Substance: PIPERACILLIN SODIUM\TAZOBACTAM SODIUM
     Indication: Graft versus host disease
     Dosage: 2.25 G, 3X/DAY(Q8H)
     Dates: start: 2019, end: 2019
  3. PIPERACILLIN SODIUM\TAZOBACTAM SODIUM [Suspect]
     Active Substance: PIPERACILLIN SODIUM\TAZOBACTAM SODIUM
     Indication: Enteritis infectious
  4. TIGECYCLINE [Suspect]
     Active Substance: TIGECYCLINE
     Indication: Graft versus host disease
     Dosage: 25 MG, 2X/DAY (EVERY 12H)
     Dates: start: 2019
  5. TIGECYCLINE [Suspect]
     Active Substance: TIGECYCLINE
     Indication: Bacterial infection
     Dosage: 50 MG, 2X/DAY (EVERY 12H)
  6. CEFOPERAZONE SODIUM\SULBACTAM SODIUM [Suspect]
     Active Substance: CEFOPERAZONE SODIUM\SULBACTAM SODIUM
     Indication: Graft versus host disease
     Dosage: 1.5 G, 3X/DAY
     Dates: start: 2019
  7. CEFOPERAZONE SODIUM\SULBACTAM SODIUM [Suspect]
     Active Substance: CEFOPERAZONE SODIUM\SULBACTAM SODIUM
     Indication: Bacterial infection
  8. CYCLOSPORINE [Suspect]
     Active Substance: CYCLOSPORINE
     Indication: Graft versus host disease
     Dosage: UNK
     Dates: start: 2019
  9. LUCITANIB [Suspect]
     Active Substance: LUCITANIB
     Indication: Graft versus host disease
     Dosage: UNK
     Dates: start: 2019
  10. CILASTATIN SODIUM\IMIPENEM [Suspect]
     Active Substance: CILASTATIN SODIUM\IMIPENEM
     Indication: Graft versus host disease
     Dosage: 0.68 G, 4X/DAY
     Dates: start: 2019
  11. CILASTATIN SODIUM\IMIPENEM [Suspect]
     Active Substance: CILASTATIN SODIUM\IMIPENEM
     Indication: Bacterial infection
  12. VANCOMYCIN [Suspect]
     Active Substance: VANCOMYCIN
     Indication: Graft versus host disease
     Dosage: 0.4 G, 2X/DAY
     Dates: start: 2019
  13. VANCOMYCIN [Suspect]
     Active Substance: VANCOMYCIN
     Indication: Bacterial infection
  14. MAXIPIME [Suspect]
     Active Substance: CEFEPIME HYDROCHLORIDE
     Indication: Graft versus host disease
     Dosage: 1 G, 3X/DAY
     Dates: start: 2019
  15. MAXIPIME [Suspect]
     Active Substance: CEFEPIME HYDROCHLORIDE
     Indication: Bacterial infection

REACTIONS (4)
  - Drug ineffective [Fatal]
  - Urinary tract infection bacterial [Fatal]
  - Escherichia infection [Fatal]
  - Off label use [Unknown]

NARRATIVE: CASE EVENT DATE: 20190101
